FAERS Safety Report 5088998-2 (Version None)
Quarter: 2006Q3

REPORT INFORMATION
  Report Type: 
  Country: None (occurrence: None)
  Receive Date: 20060825
  Receipt Date: 20060619
  Transmission Date: 20061208
  Serious: Yes (Hospitalization)
  Sender: FDA-Public Use
  Company Number: PHNU2006DE02311

PATIENT
  Age: 75 Year
  Sex: Female
  Weight: 63 kg

DRUGS (1)
  1. ZOMETA [Suspect]
     Indication: OSTEOPOROSIS
     Dosage: 4 MG, ONCE/SINGLE
     Dates: start: 20060510, end: 20060510

REACTIONS (4)
  - DIPLOPIA [None]
  - HYPERTENSIVE CRISIS [None]
  - SWELLING FACE [None]
  - VISION BLURRED [None]
